FAERS Safety Report 11071873 (Version 2)
Quarter: 2015Q2

REPORT INFORMATION
  Report Type: Spontaneous
  Country: FR (occurrence: None)
  Receive Date: 20150424
  Receipt Date: 20150504
  Transmission Date: 20150821
  Serious: Yes (Other)
  Sender: FDA-Public Use
  Company Number: 2835297

PATIENT
  Age: 67 Year
  Sex: Male

DRUGS (4)
  1. GEMCITABINE HYDROCHLORIDE. [Suspect]
     Active Substance: GEMCITABINE HYDROCHLORIDE
     Indication: LUNG ADENOCARCINOMA METASTATIC
  2. CARBOPLATIN. [Suspect]
     Active Substance: CARBOPLATIN
     Indication: LUNG ADENOCARCINOMA METASTATIC
  3. CORTANCYL [Suspect]
     Active Substance: PREDNISONE
     Indication: ASTHMA
  4. AMOXICILLIN CLAVBULANIC ACID [Concomitant]

REACTIONS (2)
  - Pneumonitis [None]
  - Pneumocystis jirovecii pneumonia [None]
